FAERS Safety Report 18358667 (Version 1)
Quarter: 2020Q4

REPORT INFORMATION
  Report Type: Report from Study
  Country: US (occurrence: US)
  Receive Date: 20201008
  Receipt Date: 20201008
  Transmission Date: 20210114
  Serious: No
  Sender: FDA-Public Use
  Company Number: US-TERSERA THERAPEUTICS LLC-US2019TSO187758

PATIENT

DRUGS (4)
  1. ZOFRAN [Concomitant]
     Active Substance: ONDANSETRON HYDROCHLORIDE
     Dosage: UNK
  2. DEXAMETHASONE. [Concomitant]
     Active Substance: DEXAMETHASONE
     Dosage: UNK
  3. ROLAPITANT HYDROCHLORIDE [Suspect]
     Active Substance: ROLAPITANT
     Dosage: 180 MG, EVERY 2 WEEKS
     Dates: start: 20191007
  4. XPOVIO [Concomitant]
     Active Substance: SELINEXOR
     Dosage: 80 MG, ONCE WEEKLY (20 MG TABLET)
     Route: 048
     Dates: start: 20191010

REACTIONS (2)
  - Abdominal discomfort [Not Recovered/Not Resolved]
  - Gait disturbance [Unknown]
